FAERS Safety Report 21773990 (Version 12)
Quarter: 2023Q4

REPORT INFORMATION
  Report Type: Report from Study
  Country: US (occurrence: US)
  Receive Date: 20221223
  Receipt Date: 20231218
  Transmission Date: 20240109
  Serious: Yes (Hospitalization, Other)
  Sender: FDA-Public Use
  Company Number: US-TAKEDA-2022TUS100451

PATIENT
  Age: 74 Year
  Sex: Male

DRUGS (2)
  1. RECOMBINATE [Suspect]
     Active Substance: ANTIHEMOPHILIC FACTOR, HUMAN RECOMBINANT
     Indication: Haemorrhage
     Dosage: 2300 INTERNATIONAL UNIT
     Route: 042
  2. RECOMBINATE [Suspect]
     Active Substance: ANTIHEMOPHILIC FACTOR, HUMAN RECOMBINANT
     Dosage: 2491 INTERNATIONAL UNIT
     Route: 042

REACTIONS (24)
  - Hyperkalaemia [Unknown]
  - Pneumonia [Unknown]
  - Blood urine present [Not Recovered/Not Resolved]
  - COVID-19 [Unknown]
  - Blood potassium increased [Unknown]
  - Gallbladder disorder [Unknown]
  - Haemarthrosis [Not Recovered/Not Resolved]
  - Haemorrhage [Not Recovered/Not Resolved]
  - Blood blister [Recovered/Resolved]
  - Infusion site haemorrhage [Not Recovered/Not Resolved]
  - Spontaneous haemorrhage [Unknown]
  - Muscle haemorrhage [Recovered/Resolved]
  - Epistaxis [Unknown]
  - Fall [Unknown]
  - Joint injury [Unknown]
  - Skin laceration [Unknown]
  - Musculoskeletal stiffness [Unknown]
  - Poor venous access [Unknown]
  - Head injury [Unknown]
  - Arthralgia [Not Recovered/Not Resolved]
  - Product leakage [Unknown]
  - Product container issue [Unknown]
  - Product distribution issue [Unknown]
  - Inappropriate schedule of product administration [Unknown]

NARRATIVE: CASE EVENT DATE: 20200915
